FAERS Safety Report 10537231 (Version 1)
Quarter: 2014Q4

REPORT INFORMATION
  Report Type: Report from Study
  Country: NL (occurrence: NL)
  Receive Date: 20141023
  Receipt Date: 20141023
  Transmission Date: 20150529
  Serious: Yes (Other)
  Sender: FDA-Public Use
  Company Number: NL-AMGEN-NLDSL2011071906

PATIENT
  Age: 53 Year
  Sex: Female

DRUGS (1)
  1. NEULASTA [Suspect]
     Active Substance: PEGFILGRASTIM
     Indication: PRODUCT USED FOR UNKNOWN INDICATION
     Dosage: UNK UNK, 03 WEEKS
     Route: 065

REACTIONS (9)
  - Fatigue [Unknown]
  - Neck pain [Unknown]
  - Breast pain [Unknown]
  - Bone marrow disorder [Unknown]
  - Back pain [Unknown]
  - Depression [Unknown]
  - Early menarche [Unknown]
  - Muscle spasms [Unknown]
  - Musculoskeletal pain [Unknown]
